FAERS Safety Report 4313370-X (Version None)
Quarter: 2004Q1

REPORT INFORMATION
  Report Type: 
  Country: None (occurrence: None)
  Receive Date: 20040304
  Receipt Date: 20040218
  Transmission Date: 20041129
  Serious: Yes (Other)
  Sender: FDA-Public Use
  Company Number: US_0402100956

PATIENT
  Sex: Male
  Weight: 30 kg

DRUGS (5)
  1. HUMULIN L [Suspect]
     Dates: start: 19970101
  2. HUMULIN R [Suspect]
     Dosage: 27 U DAY
     Dates: start: 19980101
  3. LOTENSIN [Concomitant]
  4. VITAMIN B COMPLEX CAP [Concomitant]
  5. VITAMIN C [Concomitant]

REACTIONS (9)
  - BLOOD GLUCOSE INCREASED [None]
  - CARDIOMYOPATHY [None]
  - CATARACT [None]
  - DIABETIC COMA [None]
  - DIABETIC NEUROPATHY [None]
  - ERECTILE DYSFUNCTION [None]
  - HYPOAESTHESIA [None]
  - MYOCARDIAL INFARCTION [None]
  - WOUND [None]
